FAERS Safety Report 8989193 (Version 5)
Quarter: 2013Q2

REPORT INFORMATION
  Report Type: Spontaneous
  Country: GB (occurrence: None)
  Receive Date: 20121219
  Receipt Date: 20130531
  Transmission Date: 20140414
  Serious: Yes (Other)
  Sender: FDA-Public Use
  Company Number: AUR-APL-2012-05335

PATIENT
  Sex: Male

DRUGS (1)
  1. SIMVASTATIN [Suspect]
     Indication: BLOOD CHOLESTEROL INCREASED
     Dosage: 1 D
     Route: 048
     Dates: start: 20071019

REACTIONS (4)
  - Atrial tachycardia [None]
  - Food interaction [None]
  - Muscle spasms [None]
  - Chest pain [None]
